FAERS Safety Report 6023021-4 (Version None)
Quarter: 2008Q4

REPORT INFORMATION
  Report Type: 
  Country: None (occurrence: None)
  Receive Date: 20081223
  Receipt Date: 20081209
  Transmission Date: 20090506
  Serious: Yes (Death, Hospitalization, Other)
  Sender: FDA-Public Use
  Company Number: 55018

PATIENT
  Age: 53 Year
  Sex: Male

DRUGS (1)
  1. CYCLOSPORINE [Suspect]
     Indication: IMMUNOSUPPRESSION

REACTIONS (9)
  - BRADYCARDIA [None]
  - BRAIN ABSCESS [None]
  - COMA [None]
  - GENERAL PHYSICAL HEALTH DETERIORATION [None]
  - HEMIPLEGIA [None]
  - HYPOTENSION [None]
  - NECROSIS [None]
  - PSEUDALLESCHERIA INFECTION [None]
  - TRANSPLANT REJECTION [None]
